FAERS Safety Report 5389235-1 (Version None)
Quarter: 2007Q3

REPORT INFORMATION
  Report Type: 
  Country: None (occurrence: None)
  Receive Date: 20070717
  Receipt Date: 20070709
  Transmission Date: 20080115
  Serious: Yes (Disabling)
  Sender: FDA-Public Use
  Company Number: A0661710A

PATIENT
  Age: 56 Year
  Sex: Female
  Weight: 79.5 kg

DRUGS (2)
  1. LAPATINIB [Suspect]
     Dosage: 1250MG PER DAY
     Route: 048
     Dates: start: 20070226
  2. CAPECITABINE [Suspect]
     Dosage: 2000MG TWICE PER DAY
     Route: 048
     Dates: start: 20070226

REACTIONS (10)
  - BLOOD BILIRUBIN INCREASED [None]
  - CELLULITIS [None]
  - ERYTHEMA [None]
  - HAEMORRHAGE [None]
  - OEDEMA PERIPHERAL [None]
  - PAIN IN EXTREMITY [None]
  - PALMAR-PLANTAR ERYTHRODYSAESTHESIA SYNDROME [None]
  - PURULENT DISCHARGE [None]
  - SKIN EXFOLIATION [None]
  - STAPHYLOCOCCAL INFECTION [None]
